FAERS Safety Report 5531398-9 (Version None)
Quarter: 2007Q4

REPORT INFORMATION
  Report Type: 
  Country: None (occurrence: None)
  Receive Date: 20071203
  Receipt Date: 20071127
  Transmission Date: 20080405
  Serious: Yes (Other)
  Sender: FDA-Public Use
  Company Number: BR-BRISTOL-MYERS SQUIBB COMPANY-13999404

PATIENT
  Age: 80 Year
  Sex: Male
  Weight: 57 kg

DRUGS (4)
  1. HYDREA [Suspect]
     Indication: PLATELET COUNT INCREASED
     Dosage: 1 DOSAGE FORM = 1 TABLET. ADMINISTERED 1 TABLET PER DAY. MAINTANENCE DOSE 1 TABLET EVERY 48 HOURS
     Route: 048
     Dates: start: 20060901
  2. CORGARD [Concomitant]
     Dosage: HALF TABLET A DAY, TAKEN FOR 20 YEARS.
  3. NOVOPRAZOL [Concomitant]
  4. MUCOVIT [Concomitant]

REACTIONS (5)
  - PLATELET COUNT DECREASED [None]
  - PLATELET COUNT INCREASED [None]
  - VARICOSE VEIN [None]
  - VISUAL DISTURBANCE [None]
  - WEIGHT INCREASED [None]
